FAERS Safety Report 13788746 (Version 1)
Quarter: 2017Q3

REPORT INFORMATION
  Report Type: Spontaneous
  Country: US (occurrence: US)
  Receive Date: 20170725
  Receipt Date: 20170725
  Transmission Date: 20171127
  Serious: No
  Sender: FDA-Public Use
  Company Number: US-JNJFOC-20170628524

PATIENT
  Age: 71 Year
  Sex: Male

DRUGS (8)
  1. CYANOCOBALAMIN. [Concomitant]
     Active Substance: CYANOCOBALAMIN
  2. IMBRUVICA [Suspect]
     Active Substance: IBRUTINIB
     Indication: CHRONIC LYMPHOCYTIC LEUKAEMIA
     Route: 048
     Dates: start: 20160512
  3. UBIQUINOL [Concomitant]
     Active Substance: UBIQUINOL
  4. AZITHROMYCIN ANHYDROUS. [Concomitant]
     Active Substance: AZITHROMYCIN ANHYDROUS
  5. ZYRTEC [Concomitant]
     Active Substance: CETIRIZINE HYDROCHLORIDE
  6. FISH OIL [Concomitant]
     Active Substance: FISH OIL
  7. VITAMIN D [Concomitant]
     Active Substance: CHOLECALCIFEROL
  8. LISINOPRIL. [Concomitant]
     Active Substance: LISINOPRIL

REACTIONS (1)
  - Drug dose omission [Unknown]

NARRATIVE: CASE EVENT DATE: 20170625
